FAERS Safety Report 9433767 (Version 1)
Quarter: 2013Q3

REPORT INFORMATION
  Report Type: Spontaneous
  Country: ES (occurrence: ES)
  Receive Date: 20130731
  Receipt Date: 20130731
  Transmission Date: 20140515
  Serious: Yes (Hospitalization)
  Sender: FDA-Public Use
  Company Number: ES-SANOFI-AVENTIS-2013SA074061

PATIENT
  Age: 44 Year
  Sex: Male

DRUGS (7)
  1. CLEXANE [Suspect]
     Indication: PULMONARY EMBOLISM
     Dosage: 60MG/12H
     Route: 058
     Dates: start: 20121030, end: 20121107
  2. AMOXICILINA + CLAVULANICO [Concomitant]
     Indication: RESPIRATORY TRACT INFECTION
     Dosage: 2GR/8H
     Route: 042
     Dates: start: 20121030
  3. CLARITHROMYCIN [Concomitant]
     Indication: RESPIRATORY TRACT INFECTION
     Dosage: 500MG/12H
     Route: 048
     Dates: start: 20121030
  4. DEXKETOPROFEN [Concomitant]
     Indication: PAIN
     Dosage: 50MG/8H
     Route: 042
     Dates: start: 20121030
  5. LORAZEPAM [Concomitant]
     Indication: INSOMNIA
     Dosage: 0-0-1
     Route: 048
     Dates: start: 20121030
  6. ATROVENT [Concomitant]
     Indication: BRONCHOSPASM
     Dosage: AEROSOLES/8H
     Route: 055
     Dates: start: 20121030
  7. VENTOLINE [Concomitant]
     Indication: BRONCHOSPASM
     Dosage: AEROSOLES/8H
     Route: 055
     Dates: start: 20121030

REACTIONS (1)
  - Hepatitis cholestatic [Recovering/Resolving]
